FAERS Safety Report 7208880-1 (Version None)
Quarter: 2011Q1

REPORT INFORMATION
  Report Type: 
  Country: None (occurrence: None)
  Receive Date: 20110104
  Receipt Date: 20101228
  Transmission Date: 20110831
  Serious: No
  Sender: FDA-Public Use
  Company Number: US-TEVA-253295USA

PATIENT
  Sex: Female

DRUGS (1)
  1. COPAXONE [Suspect]
     Indication: MULTIPLE SCLEROSIS
     Route: 058
     Dates: start: 20101007, end: 20101101

REACTIONS (3)
  - INJECTION SITE REACTION [None]
  - INJECTION SITE INDURATION [None]
  - INJECTION SITE PRURITUS [None]
